FAERS Safety Report 5927827-9 (Version None)
Quarter: 2008Q4

REPORT INFORMATION
  Report Type: 
  Country: None (occurrence: None)
  Receive Date: 20081023
  Receipt Date: 20081014
  Transmission Date: 20090506
  Serious: Yes (Other)
  Sender: FDA-Public Use
  Company Number: GB-ROCHE-585695

PATIENT
  Sex: Female
  Weight: 101.6 kg

DRUGS (4)
  1. ORLISTAT [Suspect]
     Indication: OBESITY
     Route: 048
     Dates: start: 20080418
  2. INDAPAMIDE [Concomitant]
     Indication: HYPERTENSION
     Route: 048
  3. INSULIN [Concomitant]
     Dosage: REPORTED AS INSULIN LANTAS 32 UNITS NOCTE
     Route: 058
  4. ASPIRIN [Concomitant]
     Indication: THROMBOSIS PROPHYLAXIS
     Route: 048

REACTIONS (2)
  - BLOOD GLUCOSE DECREASED [None]
  - HYPOGLYCAEMIC COMA [None]
